FAERS Safety Report 14114594 (Version 2)
Quarter: 2018Q1

REPORT INFORMATION
  Report Type: Report from Study
  Country: US (occurrence: US)
  Receive Date: 20171023
  Receipt Date: 20180202
  Transmission Date: 20180508
  Serious: Yes (Death, Disabling, Other)
  Sender: FDA-Public Use
  Company Number: US-EMD SERONO-8195459

PATIENT
  Sex: Male
  Weight: 45 kg

DRUGS (1)
  1. REBIF [Suspect]
     Active Substance: INTERFERON BETA-1A
     Indication: MULTIPLE SCLEROSIS
     Route: 058
     Dates: start: 2007, end: 20171001

REACTIONS (3)
  - Multiple sclerosis [Unknown]
  - Lung neoplasm malignant [Fatal]
  - Diabetes mellitus [Unknown]
